FAERS Safety Report 13680203 (Version 8)
Quarter: 2018Q1

REPORT INFORMATION
  Report Type: Spontaneous
  Country: US (occurrence: US)
  Receive Date: 20170622
  Receipt Date: 20180206
  Transmission Date: 20180508
  Serious: Yes (Death, Hospitalization)
  Sender: FDA-Public Use
  Company Number: US-ACTELION-A-NJ2017-155771

PATIENT
  Age: 69 Year
  Sex: Female
  Weight: 73.92 kg

DRUGS (4)
  1. VELETRI [Suspect]
     Active Substance: EPOPROSTENOL
     Indication: PULMONARY ARTERIAL HYPERTENSION
     Dosage: 21 NG/KG, PER MIN
     Route: 042
     Dates: end: 20180105
  2. NEILMED SINUS RINSE [Concomitant]
     Active Substance: SODIUM BICARBONATE\SODIUM CHLORIDE
  3. SILDENAFIL. [Concomitant]
     Active Substance: SILDENAFIL
  4. REVATIO [Concomitant]
     Active Substance: SILDENAFIL CITRATE

REACTIONS (18)
  - Disease progression [Fatal]
  - Vomiting [Unknown]
  - Diarrhoea [Unknown]
  - Epistaxis [Unknown]
  - Pyrexia [Unknown]
  - Dizziness [Unknown]
  - Flushing [Unknown]
  - Respiratory syncytial virus infection [Fatal]
  - Chronic obstructive pulmonary disease [Unknown]
  - Retching [Unknown]
  - Conjunctivitis [Unknown]
  - Rash pruritic [Unknown]
  - Nausea [Unknown]
  - Pulmonary arterial hypertension [Fatal]
  - Cough [Unknown]
  - Pruritus [Unknown]
  - Respiratory failure [Fatal]
  - Dyspnoea [Unknown]

NARRATIVE: CASE EVENT DATE: 20170913
